FAERS Safety Report 4795145-0 (Version None)
Quarter: 2005Q4

REPORT INFORMATION
  Report Type: 
  Country: None (occurrence: None)
  Receive Date: 20051012
  Receipt Date: 20051004
  Transmission Date: 20060501
  Serious: Yes (Other)
  Sender: FDA-Public Use
  Company Number: 200513246FR

PATIENT
  Age: 50 Year
  Sex: Female

DRUGS (1)
  1. BIRODOGYL [Suspect]
     Indication: TOOTH ABSCESS
     Route: 048
     Dates: start: 20050922, end: 20050923

REACTIONS (3)
  - AMNESIA [None]
  - CONFUSIONAL STATE [None]
  - LOSS OF CONSCIOUSNESS [None]
